FAERS Safety Report 4789327-1 (Version None)
Quarter: 2005Q3

REPORT INFORMATION
  Report Type: 
  Country: None (occurrence: None)
  Receive Date: 20050929
  Receipt Date: 20050808
  Transmission Date: 20060218
  Serious: No
  Sender: FDA-Public Use
  Company Number: 05P-163-0307847

PATIENT
  Age: 53 Year
  Sex: Female
  Weight: 65.7716 kg

DRUGS (4)
  1. HUMIRA                   (ADALIMUMAB) [Suspect]
     Indication: RHEUMATOID ARTHRITIS
     Dates: start: 20041001, end: 20050201
  2. HUMIRA                   (ADALIMUMAB) [Suspect]
     Indication: RHEUMATOID ARTHRITIS
     Dates: start: 20050701
  3. ZULFADINE [Concomitant]
  4. FUROSEMIDE [Concomitant]

REACTIONS (1)
  - ARTHRITIS [None]
